FAERS Safety Report 18643925 (Version 2)
Quarter: 2021Q1

REPORT INFORMATION
  Report Type: Spontaneous
  Country: IT (occurrence: IT)
  Receive Date: 20201221
  Receipt Date: 20210104
  Transmission Date: 20210419
  Serious: Yes (Death, Other)
  Sender: FDA-Public Use
  Company Number: IT-PFIZER INC-2020487258

PATIENT
  Age: 64 Year
  Sex: Male
  Weight: 80 kg

DRUGS (3)
  1. MYLOTARG [Suspect]
     Active Substance: GEMTUZUMAB OZOGAMICIN
     Indication: ACUTE MYELOID LEUKAEMIA
     Dosage: 3 MG/M2, CYCLIC (DAYS 1?4?7)
     Route: 042
     Dates: start: 20201013, end: 20201019
  2. DAUNORUBICIN HCL [Concomitant]
     Active Substance: DAUNORUBICIN HYDROCHLORIDE
     Indication: ACUTE MYELOID LEUKAEMIA
     Dosage: 60 MG/M2, CYCLIC (DAYS 1?3)
     Dates: start: 20201013, end: 20201016
  3. CYTARABINE. [Concomitant]
     Active Substance: CYTARABINE
     Indication: ACUTE MYELOID LEUKAEMIA
     Dosage: 200 MG/M2, CYCLIC (DAYS 1?7)
     Dates: start: 20201013, end: 20201019

REACTIONS (5)
  - Hepatic encephalopathy [Fatal]
  - Staphylococcal sepsis [Unknown]
  - Hepatorenal syndrome [Fatal]
  - Venoocclusive liver disease [Fatal]
  - Myelosuppression [Unknown]

NARRATIVE: CASE EVENT DATE: 2020
